FAERS Safety Report 7656016-5 (Version None)
Quarter: 2011Q3

REPORT INFORMATION
  Report Type: 
  Country: None (occurrence: None)
  Receive Date: 20110804
  Receipt Date: 20110721
  Transmission Date: 20111222
  Serious: Yes (Other)
  Sender: FDA-Public Use
  Company Number: US-ROCHE-749896

PATIENT
  Sex: Male
  Weight: 77.1 kg

DRUGS (1)
  1. ACCUTANE [Suspect]
     Indication: ACNE
     Route: 065
     Dates: start: 19820601, end: 19830101

REACTIONS (5)
  - INFLAMMATORY BOWEL DISEASE [None]
  - ANAEMIA [None]
  - COLITIS ULCERATIVE [None]
  - COLONIC POLYP [None]
  - GASTROINTESTINAL INJURY [None]
